FAERS Safety Report 22344340 (Version 1)
Quarter: 2023Q2

REPORT INFORMATION
  Report Type: Spontaneous
  Country: US (occurrence: None)
  Receive Date: 20230518
  Receipt Date: 20230518
  Transmission Date: 20230721
  Serious: Yes (Hospitalization)
  Sender: FDA-Public Use
  Company Number: None

PATIENT
  Age: 64 Year
  Sex: Male

DRUGS (5)
  1. ERIVEDGE [Suspect]
     Active Substance: VISMODEGIB
     Indication: Basal cell carcinoma
     Dosage: FREQUENCY : DAILY;?
     Route: 048
     Dates: end: 20230515
  2. TRAMADOL [Concomitant]
     Active Substance: TRAMADOL
  3. IBUPROFEN [Concomitant]
  4. EFUDEX [Concomitant]
     Active Substance: FLUOROURACIL
  5. TYLENOL WITH CODEINE [Concomitant]
     Active Substance: ACETAMINOPHEN\CODEINE PHOSPHATE

REACTIONS (4)
  - Vomiting [None]
  - Diarrhoea haemorrhagic [None]
  - Therapy cessation [None]
  - Ulcer haemorrhage [None]

NARRATIVE: CASE EVENT DATE: 20230515
